FAERS Safety Report 5264775-4 (Version None)
Quarter: 2007Q1

REPORT INFORMATION
  Report Type: 
  Country: None (occurrence: None)
  Receive Date: 20061117
  Receipt Date: 20060707
  Transmission Date: 20070707
  Serious: Yes (Other)
  Sender: FDA-Public Use
  Company Number: US-JNJFOC-20060404642

PATIENT
  Age: 69 Year
  Sex: Female
  Weight: 51.7101 kg

DRUGS (10)
  1. LEVAQUIN [Suspect]
     Indication: GROIN ABSCESS
     Dosage: 500 MG, 1 IN 1 DAY, ORAL
     Route: 048
     Dates: start: 20051215, end: 20051230
  2. PREDNISONE TAB [Concomitant]
  3. FUROSEMIDE [Concomitant]
  4. LORAZEPAM [Concomitant]
  5. METOPROLOL TARTRATE [Concomitant]
  6. FOSAMAX [Concomitant]
  7. COLESTID [Concomitant]
  8. OCUVITE (OCUVITE) [Concomitant]
  9. MULTIVITAMIN [Concomitant]
  10. CLIMARA [Concomitant]

REACTIONS (6)
  - ANGER [None]
  - ARTHRALGIA [None]
  - DEPRESSION [None]
  - MYALGIA [None]
  - TENDON RUPTURE [None]
  - TENDONITIS [None]
